FAERS Safety Report 14264198 (Version 4)
Quarter: 2018Q1

REPORT INFORMATION
  Report Type: Report from Study
  Country: ES (occurrence: ES)
  Receive Date: 20171208
  Receipt Date: 20180305
  Transmission Date: 20180508
  Serious: Yes (Other)
  Sender: FDA-Public Use
  Company Number: ES-AMGEN-ESPSL2017177056

PATIENT
  Age: 77 Year
  Sex: Female

DRUGS (1)
  1. NPLATE [Suspect]
     Active Substance: ROMIPLOSTIM
     Indication: THROMBOCYTOPENIC PURPURA
     Dosage: 150 MUG, QWK
     Route: 065

REACTIONS (5)
  - Platelet count abnormal [Unknown]
  - Wound [Recovered/Resolved]
  - Mouth haemorrhage [Recovered/Resolved]
  - Contusion [Recovering/Resolving]
  - Haematoma [Recovering/Resolving]

NARRATIVE: CASE EVENT DATE: 2017
